FAERS Safety Report 20924149 (Version 1)
Quarter: 2022Q2

REPORT INFORMATION
  Report Type: Spontaneous
  Country: US (occurrence: US)
  Receive Date: 20220607
  Receipt Date: 20220607
  Transmission Date: 20220721
  Serious: No
  Sender: FDA-Public Use
  Company Number: US-009507513-2205USA008648

PATIENT
  Sex: Female
  Weight: 58.97 kg

DRUGS (6)
  1. PRINIVIL [Suspect]
     Active Substance: LISINOPRIL
     Indication: Blood pressure abnormal
     Dosage: UNK
     Route: 048
  2. INDERAL LA [Suspect]
     Active Substance: PROPRANOLOL HYDROCHLORIDE
     Indication: Migraine prophylaxis
     Dosage: 80 MG
     Route: 048
     Dates: start: 1997
  3. INDERAL LA [Suspect]
     Active Substance: PROPRANOLOL HYDROCHLORIDE
     Indication: Blood pressure abnormal
     Dosage: SHE TAKES 80MG ONE DAY SHE AND THE NEXT DAY TAKES 120MG
     Route: 048
  4. INDERAL LA [Suspect]
     Active Substance: PROPRANOLOL HYDROCHLORIDE
     Indication: Cardiac disorder
     Dosage: SHE TAKES 80MG ONE DAY SHE AND THE NEXT DAY TAKES 120MG
     Route: 048
  5. ZOMIG [Concomitant]
     Active Substance: ZOLMITRIPTAN
     Indication: Migraine
     Dosage: 2.5 DISSOLVABLE
     Dates: start: 1997
  6. DESIPRAMINE [Concomitant]
     Active Substance: DESIPRAMINE

REACTIONS (1)
  - Headache [Unknown]
